FAERS Safety Report 6635282-9 (Version None)
Quarter: 2010Q1

REPORT INFORMATION
  Report Type: 
  Country: None (occurrence: None)
  Receive Date: 20100315
  Receipt Date: 20100302
  Transmission Date: 20100710
  Serious: Yes (Other)
  Sender: FDA-Public Use
  Company Number: US-TYCO HEALTHCARE/MALLINCKRODT-T201000709

PATIENT
  Age: 30 Year
  Sex: Female

DRUGS (5)
  1. METHADOSE [Suspect]
     Indication: PAIN
     Dosage: 45 MG IN THREE DIVIDED DOSES A DAY
  2. DIAZEPAM [Concomitant]
     Indication: DEPRESSION
  3. DIAZEPAM [Concomitant]
     Indication: ANXIETY DISORDER
  4. ESCITALOPRAM [Concomitant]
     Indication: DEPRESSION
  5. ESCITALOPRAM [Concomitant]
     Indication: ANXIETY DISORDER

REACTIONS (2)
  - BREATHING-RELATED SLEEP DISORDER [None]
  - SOMNOLENCE [None]
